FAERS Safety Report 17478186 (Version 1)
Quarter: 2020Q1

REPORT INFORMATION
  Report Type: Spontaneous
  Country: FR (occurrence: FR)
  Receive Date: 20200228
  Receipt Date: 20200228
  Transmission Date: 20200409
  Serious: Yes (Other)
  Sender: FDA-Public Use
  Company Number: FR-MYLANLABS-2020M1021692

PATIENT
  Age: 26 Year
  Sex: Female

DRUGS (5)
  1. MORPHINE [Suspect]
     Active Substance: MORPHINE
     Indication: PAIN
     Dosage: 5 MILLIGRAM, Q4H
     Route: 041
     Dates: start: 20191212, end: 20191214
  2. PANTOPRAZOLE SODIUM. [Suspect]
     Active Substance: PANTOPRAZOLE SODIUM
     Indication: PRODUCT USED FOR UNKNOWN INDICATION
     Dosage: 40 MILLIGRAM, QD
     Route: 041
     Dates: start: 20191028, end: 20191115
  3. MYLAN-LANSOPRAZOLE [Suspect]
     Active Substance: LANSOPRAZOLE
     Indication: PRODUCT USED FOR UNKNOWN INDICATION
     Dosage: 40 MILLIGRAM, QD
     Route: 048
     Dates: start: 20191116, end: 20191213
  4. PROPOFOL FRESENIUS [Suspect]
     Active Substance: PROPOFOL
     Indication: SEDATION
     Dosage: VARIABLE
     Route: 041
     Dates: start: 20191031, end: 20191129
  5. SUFENTANIL [Suspect]
     Active Substance: SUFENTANIL
     Indication: PAIN
     Dosage: 10 MICROGRAM, QH
     Route: 041
     Dates: start: 20191031, end: 20191201

REACTIONS (2)
  - Hyperlipasaemia [Recovering/Resolving]
  - Pancreatitis [Unknown]

NARRATIVE: CASE EVENT DATE: 20191101
